FAERS Safety Report 14561672 (Version 2)
Quarter: 2018Q2

REPORT INFORMATION
  Report Type: Spontaneous
  Country: US (occurrence: US)
  Receive Date: 20180222
  Receipt Date: 20180405
  Transmission Date: 20180711
  Serious: Yes (Death, Hospitalization)
  Sender: FDA-Public Use
  Company Number: US-ROCHE-2078389

PATIENT
  Age: 67 Year
  Sex: Male

DRUGS (1)
  1. ESBRIET [Suspect]
     Active Substance: PIRFENIDONE
     Indication: IDIOPATHIC PULMONARY FIBROSIS
     Route: 048
     Dates: start: 20150814

REACTIONS (9)
  - Hypoxia [Unknown]
  - Dyspnoea [Unknown]
  - Pneumomediastinum [Unknown]
  - Pneumonia [Unknown]
  - Subcutaneous emphysema [Unknown]
  - Pulmonary hypertension [Fatal]
  - Pneumothorax [Unknown]
  - Anxiety [Unknown]
  - Pain [Unknown]

NARRATIVE: CASE EVENT DATE: 20180214
